FAERS Safety Report 7088625-9 (Version None)
Quarter: 2010Q4

REPORT INFORMATION
  Report Type: 
  Country: None (occurrence: None)
  Receive Date: 20101029
  Receipt Date: 20101018
  Transmission Date: 20110411
  Serious: Yes (Death, Hospitalization)
  Sender: FDA-Public Use
  Company Number: 2010P1002127

PATIENT
  Age: 42 Year
  Sex: Female

DRUGS (1)
  1. PREDNISONE (NO PREF. NAME) [Suspect]
     Indication: EPSTEIN-BARR VIRAEMIA
     Dosage: 10 MG; Q12H; PO
     Route: 048

REACTIONS (12)
  - ABSCESS [None]
  - ACUTE MYOCARDIAL INFARCTION [None]
  - ALPHA HAEMOLYTIC STREPTOCOCCAL INFECTION [None]
  - BACTERAEMIA [None]
  - ENDOCARDITIS [None]
  - FATIGUE [None]
  - GENERAL PHYSICAL HEALTH DETERIORATION [None]
  - HAEMATOCRIT DECREASED [None]
  - HAEMOGLOBIN DECREASED [None]
  - RESPIRATORY DISTRESS [None]
  - SUBACUTE ENDOCARDITIS [None]
  - TREATMENT FAILURE [None]
